FAERS Safety Report 16240880 (Version 3)
Quarter: 2020Q4

REPORT INFORMATION
  Report Type: Spontaneous
  Country: US (occurrence: US)
  Receive Date: 20190425
  Receipt Date: 20201028
  Transmission Date: 20210113
  Serious: Yes (Other)
  Sender: FDA-Public Use
  Company Number: US-ASTRAZENECA-2019SE56944

PATIENT
  Age: 23764 Day
  Sex: Female
  Weight: 92.1 kg

DRUGS (41)
  1. VALSARTAN. [Concomitant]
     Active Substance: VALSARTAN
     Indication: BLOOD CHOLESTEROL
     Route: 065
     Dates: start: 20130227, end: 20161009
  2. NEXIUM [Suspect]
     Active Substance: ESOMEPRAZOLE MAGNESIUM
     Indication: GASTROOESOPHAGEAL REFLUX DISEASE
     Route: 048
     Dates: start: 20151020
  3. CLOBETASOL [Concomitant]
     Active Substance: CLOBETASOL
  4. TOPROL XL [Concomitant]
     Active Substance: METOPROLOL SUCCINATE
  5. KETOCONAZOLE. [Concomitant]
     Active Substance: KETOCONAZOLE
  6. CEFDINIR. [Concomitant]
     Active Substance: CEFDINIR
     Dates: start: 20160512
  7. FAMOTIDINE. [Concomitant]
     Active Substance: FAMOTIDINE
     Dosage: GENERIC
     Dates: start: 20160907, end: 20170920
  8. NEXIUM 24HR [Suspect]
     Active Substance: ESOMEPRAZOLE MAGNESIUM
     Indication: GASTROOESOPHAGEAL REFLUX DISEASE
     Route: 048
     Dates: start: 201609, end: 201609
  9. CYANOCOBALAMIN. [Concomitant]
     Active Substance: CYANOCOBALAMIN
  10. LOSARTAN. [Concomitant]
     Active Substance: LOSARTAN
     Indication: BLOOD CHOLESTEROL
     Route: 065
     Dates: start: 20130103, end: 20170427
  11. PREDNISONE. [Concomitant]
     Active Substance: PREDNISONE
     Dates: start: 20160512
  12. VALSARTAN. [Concomitant]
     Active Substance: VALSARTAN
     Indication: BLOOD CHOLESTEROL
     Route: 065
     Dates: start: 20160518
  13. MELOXICAM. [Concomitant]
     Active Substance: MELOXICAM
     Dates: start: 20130522
  14. NEXIUM [Suspect]
     Active Substance: ESOMEPRAZOLE MAGNESIUM
     Indication: GASTROOESOPHAGEAL REFLUX DISEASE
     Route: 048
     Dates: start: 201609, end: 201609
  15. PRILOSEC [Suspect]
     Active Substance: OMEPRAZOLE MAGNESIUM
     Indication: GASTROOESOPHAGEAL REFLUX DISEASE
     Dosage: GENERIC
     Route: 048
     Dates: start: 20120710, end: 20160928
  16. MONTELUKAST [Concomitant]
     Active Substance: MONTELUKAST SODIUM
  17. PRILOSEC [Suspect]
     Active Substance: OMEPRAZOLE MAGNESIUM
     Indication: GASTROOESOPHAGEAL REFLUX DISEASE
     Dosage: GENERIC
     Route: 048
     Dates: start: 20120830
  18. ADVAIR HFA [Concomitant]
     Active Substance: FLUTICASONE PROPIONATE\SALMETEROL XINAFOATE
  19. TRAMADOL. [Concomitant]
     Active Substance: TRAMADOL
     Indication: PAIN
     Route: 065
     Dates: start: 20130102, end: 20170705
  20. PROAIR HFA [Concomitant]
     Active Substance: ALBUTEROL SULFATE
     Dates: start: 20160512
  21. OXYCODONE [Concomitant]
     Active Substance: OXYCODONE
     Dates: start: 20160217
  22. METOPROLOL. [Concomitant]
     Active Substance: METOPROLOL
     Dates: start: 20160301
  23. SPIRONOLACTONE. [Concomitant]
     Active Substance: SPIRONOLACTONE
     Indication: DIURETIC THERAPY
     Route: 065
     Dates: start: 20160518, end: 20170612
  24. FLUCONAZOLE. [Concomitant]
     Active Substance: FLUCONAZOLE
  25. CYMBALTA [Concomitant]
     Active Substance: DULOXETINE HYDROCHLORIDE
  26. LIVALO [Concomitant]
     Active Substance: PITAVASTATIN CALCIUM
     Route: 065
     Dates: start: 20170919
  27. PRILOSEC [Suspect]
     Active Substance: OMEPRAZOLE MAGNESIUM
     Indication: GASTROOESOPHAGEAL REFLUX DISEASE
     Route: 048
     Dates: start: 201609, end: 201609
  28. PRILOSEC OTC [Suspect]
     Active Substance: OMEPRAZOLE MAGNESIUM
     Route: 048
     Dates: start: 201609, end: 201609
  29. ALLEGRA [Concomitant]
     Active Substance: FEXOFENADINE HYDROCHLORIDE
  30. CRESTOR [Concomitant]
     Active Substance: ROSUVASTATIN CALCIUM
  31. GABAPENTIN. [Concomitant]
     Active Substance: GABAPENTIN
  32. VITAMIN D3 [Concomitant]
     Active Substance: CHOLECALCIFEROL
  33. FUROSEMIDE. [Concomitant]
     Active Substance: FUROSEMIDE
     Indication: DIURETIC THERAPY
     Dates: start: 20160427
  34. ZYRTEC [Concomitant]
     Active Substance: CETIRIZINE HYDROCHLORIDE
  35. PHENAZOPYRIDINE. [Concomitant]
     Active Substance: PHENAZOPYRIDINE
  36. AMOXICILLIN. [Concomitant]
     Active Substance: AMOXICILLIN
     Indication: ANTIBIOTIC THERAPY
     Route: 065
     Dates: start: 20151217, end: 20170626
  37. AZITHROMYCIN ANHYDROUS. [Concomitant]
     Active Substance: AZITHROMYCIN ANHYDROUS
     Indication: ANTIBIOTIC THERAPY
     Route: 065
     Dates: start: 20160122
  38. NEXIUM [Suspect]
     Active Substance: ESOMEPRAZOLE MAGNESIUM
     Indication: GASTROOESOPHAGEAL REFLUX DISEASE
     Route: 048
     Dates: start: 2001
  39. NEXIUM 24HR [Suspect]
     Active Substance: ESOMEPRAZOLE MAGNESIUM
     Indication: GASTROOESOPHAGEAL REFLUX DISEASE
     Route: 048
     Dates: start: 2014, end: 20160907
  40. FUROSEMIDE. [Concomitant]
     Active Substance: FUROSEMIDE
     Indication: DIURETIC THERAPY
     Route: 065
     Dates: start: 20160323, end: 20170626
  41. POTASSIUM CHLORIDE. [Concomitant]
     Active Substance: POTASSIUM CHLORIDE

REACTIONS (2)
  - Gastrooesophageal reflux disease [Not Recovered/Not Resolved]
  - Chronic kidney disease [Not Recovered/Not Resolved]

NARRATIVE: CASE EVENT DATE: 20140617
